FAERS Safety Report 11057446 (Version 3)
Quarter: 2015Q2

REPORT INFORMATION
  Report Type: Spontaneous
  Country: US (occurrence: US)
  Receive Date: 20150422
  Receipt Date: 20150612
  Transmission Date: 20150821
  Serious: Yes (Other)
  Sender: FDA-Public Use
  Company Number: US-TEVA-534805USA

PATIENT
  Age: 49 Year
  Sex: Female

DRUGS (10)
  1. DIAZEPAM. [Concomitant]
     Active Substance: DIAZEPAM
     Dosage: TWICE A DAY AS NEEDED
     Route: 048
  2. DIAZEPAM. [Concomitant]
     Active Substance: DIAZEPAM
     Dosage: 1/2 TO 1 TABLET DAILY AS NEEDED
     Route: 048
  3. FLUOXETINE [Suspect]
     Active Substance: FLUOXETINE\FLUOXETINE HYDROCHLORIDE
     Indication: MAJOR DEPRESSION
     Dosage: 20 MILLIGRAM DAILY;
     Route: 048
     Dates: start: 2007, end: 201408
  4. DIAZEPAM. [Concomitant]
     Active Substance: DIAZEPAM
     Indication: ANXIETY
     Dosage: TWICE A DAY AS NEEDED
     Route: 048
  5. FLUOXETINE [Suspect]
     Active Substance: FLUOXETINE\FLUOXETINE HYDROCHLORIDE
     Dosage: 40 MILLIGRAM DAILY;
     Route: 048
  6. FLUOXETINE [Suspect]
     Active Substance: FLUOXETINE\FLUOXETINE HYDROCHLORIDE
     Route: 048
     Dates: start: 200809, end: 2010
  7. PROZAC [Suspect]
     Active Substance: FLUOXETINE HYDROCHLORIDE
     Route: 065
  8. LITHIUM. [Concomitant]
     Active Substance: LITHIUM
  9. DEPLIN [Concomitant]
     Active Substance: LEVOMEFOLATE CALCIUM
     Dosage: 15 MILLIGRAM DAILY;
     Route: 048
  10. STRATTERA [Concomitant]
     Active Substance: ATOMOXETINE HYDROCHLORIDE

REACTIONS (35)
  - Myocardial infarction [Unknown]
  - Tremor [Unknown]
  - Irritability [Unknown]
  - Influenza like illness [Unknown]
  - Tachyphrenia [Recovered/Resolved]
  - Agoraphobia [Not Recovered/Not Resolved]
  - Obsessive-compulsive disorder [Unknown]
  - Hallucination [Unknown]
  - Serotonin syndrome [Not Recovered/Not Resolved]
  - Dyspnoea exertional [Unknown]
  - Appendicectomy [Unknown]
  - Mania [Not Recovered/Not Resolved]
  - Feeling abnormal [Unknown]
  - Temperature intolerance [Unknown]
  - Cough [Unknown]
  - Panic attack [Unknown]
  - Decreased appetite [Unknown]
  - Depression [Unknown]
  - Nodule [Unknown]
  - Accidental overdose [Unknown]
  - Drug withdrawal syndrome [Unknown]
  - Bipolar disorder [Unknown]
  - Emotional distress [Not Recovered/Not Resolved]
  - Anxiety [Unknown]
  - Hot flush [Unknown]
  - Mood swings [Unknown]
  - Large intestine polyp [Unknown]
  - Night sweats [Unknown]
  - Nightmare [Unknown]
  - Suicidal ideation [Not Recovered/Not Resolved]
  - Palpitations [Unknown]
  - Fatigue [Unknown]
  - Menstruation irregular [Unknown]
  - Headache [Recovered/Resolved]
  - Chronic obstructive pulmonary disease [Not Recovered/Not Resolved]

NARRATIVE: CASE EVENT DATE: 2012
